FAERS Safety Report 5140879-1 (Version None)
Quarter: 2006Q4

REPORT INFORMATION
  Report Type: 
  Country: None (occurrence: None)
  Receive Date: 20060901
  Receipt Date: 20060720
  Transmission Date: 20070319
  Serious: Yes (Hospitalization)
  Sender: FDA-Public Use
  Company Number: 2006MP000902

PATIENT
  Age: 78 Year
  Sex: Female
  Weight: 56.6996 kg

DRUGS (3)
  1. DACOGEN [Suspect]
     Indication: MYELODYSPLASTIC SYNDROME
     Dosage: 32.5 MG;QD;IV
     Route: 042
     Dates: start: 20060619, end: 20060623
  2. PRILOSEC [Concomitant]
  3. AMBIEN [Concomitant]

REACTIONS (4)
  - ANAEMIA [None]
  - NEUTROPENIA [None]
  - OFF LABEL USE [None]
  - STOMATITIS [None]
